FAERS Safety Report 5410453-8 (Version None)
Quarter: 2007Q3

REPORT INFORMATION
  Report Type: 
  Country: None (occurrence: None)
  Receive Date: 20070810
  Receipt Date: 20061214
  Transmission Date: 20080115
  Serious: No
  Sender: FDA-Public Use
  Company Number: A0631634A

PATIENT
  Age: 72 Year
  Sex: Female

DRUGS (5)
  1. PAROXETINE [Suspect]
     Indication: DEPRESSION
     Route: 048
  2. CELEXA [Concomitant]
  3. SYNTHROID [Concomitant]
  4. LIPITOR [Concomitant]
  5. MULTIVITAMIN [Concomitant]

REACTIONS (1)
  - DRUG INEFFECTIVE [None]
